FAERS Safety Report 15857776 (Version 1)
Quarter: 2018Q4

REPORT INFORMATION
  Report Type: Spontaneous
  Country: US (occurrence: US)
  Receive Date: 20181228
  Receipt Date: 20181228
  Transmission Date: 20190205
  Serious: No
  Sender: FDA-Public Use
  Company Number: None

PATIENT
  Age: 68 Year
  Sex: Male

DRUGS (1)
  1. RIBAVIRIN TAB 200MG [Suspect]
     Active Substance: RIBAVIRIN
     Dates: start: 201810

REACTIONS (3)
  - Headache [None]
  - Disturbance in attention [None]
  - Fatigue [None]

NARRATIVE: CASE EVENT DATE: 20181227
